FAERS Safety Report 15749217 (Version 1)
Quarter: 2018Q4

REPORT INFORMATION
  Report Type: Spontaneous
  Country: US (occurrence: US)
  Receive Date: 20181205
  Receipt Date: 20181205
  Transmission Date: 20190205
  Serious: No
  Sender: FDA-Public Use
  Company Number: None

PATIENT
  Age: 75 Year
  Sex: Female
  Weight: 68.04 kg

DRUGS (1)
  1. CIMZIA [Suspect]
     Active Substance: CERTOLIZUMAB PEGOL
     Indication: RHEUMATOID ARTHRITIS
     Dosage: ?          OTHER FREQUENCY:EVERY 2 WEEKS;?
     Route: 058
     Dates: start: 201805

REACTIONS (8)
  - Muscle spasms [None]
  - Injection site erythema [None]
  - Peripheral swelling [None]
  - Injection site pain [None]
  - Injection site pruritus [None]
  - Injection site swelling [None]
  - Injection site rash [None]
  - Injection site bruising [None]
